FAERS Safety Report 4747856-0 (Version None)
Quarter: 2005Q3

REPORT INFORMATION
  Report Type: 
  Country: None (occurrence: None)
  Receive Date: 20050817
  Receipt Date: 20050817
  Transmission Date: 20060218
  Serious: Yes (Hospitalization)
  Sender: FDA-Public Use
  Company Number: None

PATIENT
  Sex: Male

DRUGS (3)
  1. MOXIFLOXACIN [Suspect]
     Dosage: 400 MG ONCE DAILY ORAL
     Route: 048
     Dates: start: 20050507, end: 20050609
  2. DIPHENHYDRAMINE HCL [Concomitant]
  3. HYDROXYZINE [Concomitant]

REACTIONS (1)
  - STEVENS-JOHNSON SYNDROME [None]
